FAERS Safety Report 16598231 (Version 1)
Quarter: 2019Q3

REPORT INFORMATION
  Report Type: Spontaneous
  Country: DE (occurrence: DE)
  Receive Date: 20190719
  Receipt Date: 20190719
  Transmission Date: 20191004
  Serious: Yes (Hospitalization)
  Sender: FDA-Public Use
  Company Number: DE-PFIZER INC-2019302172

PATIENT
  Age: 83 Year
  Sex: Male
  Weight: 103 kg

DRUGS (15)
  1. PREDNISOLONE. [Suspect]
     Active Substance: PREDNISOLONE
     Dosage: 25 MG, AS PER REGIMEN
  2. ATROVENT [Concomitant]
     Active Substance: IPRATROPIUM BROMIDE
     Dosage: 500 ?G, UNK
     Route: 055
  3. XELEVIA [Concomitant]
     Active Substance: SITAGLIPTIN PHOSPHATE
     Dosage: 50 MG, 1-0-0-0
  4. RAMIPRIL. [Concomitant]
     Active Substance: RAMIPRIL
     Dosage: 5 MG, 1-0-1-0
  5. FLUOROURACIL. [Suspect]
     Active Substance: FLUOROURACIL
     Dosage: 500 MG, UNK, (WITH CHEMO, MOST RECENT DOSE ON 11DEC2017, LAST DOSE UNK)
     Route: 042
  6. PANTOPRAZOL [PANTOPRAZOLE] [Concomitant]
     Active Substance: PANTOPRAZOLE
     Dosage: 40 MG, 1-0-1-0
  7. DEKRISTOL [Concomitant]
     Active Substance: CHOLECALCIFEROL
     Dosage: 20000 IE/MONTH, 2X A MONTH
  8. TORASEMID [Concomitant]
     Active Substance: TORSEMIDE
     Dosage: 10 MG, 1-0-0-0
  9. CALCIUM FOLINATE [Concomitant]
     Active Substance: LEUCOVORIN CALCIUM
     Dosage: 500 MG, (MOST RECENT DOSE ON 11DEC2017)
     Route: 042
  10. BISOPROLOL [Concomitant]
     Active Substance: BISOPROLOL
     Dosage: 5 MG, 0.5-0-0.5-0
  11. SALBUTAMOL [Concomitant]
     Active Substance: ALBUTEROL
     Dosage: 1.5 MG, UNK
     Route: 055
  12. PHENPROCOUMON [Concomitant]
     Active Substance: PHENPROCOUMON
     Dosage: 3 MG, AS PER REGIMEN
  13. INNOHEP [Concomitant]
     Active Substance: TINZAPARIN SODIUM
     Dosage: 18000 IE, AS PER REGIMEN, PRE-FILLED SYRINGE
     Route: 058
  14. IRINOTECAN HCL [Suspect]
     Active Substance: IRINOTECAN HYDROCHLORIDE
     Dosage: 100 MG, (MOST RECENT DOSE 11DEC2017)
     Route: 042
  15. BICANORM [Concomitant]
     Active Substance: SODIUM BICARBONATE
     Dosage: UNK MG, 1-0-1-0

REACTIONS (3)
  - Cough [Unknown]
  - General physical health deterioration [Unknown]
  - Dyspnoea exertional [Unknown]
